FAERS Safety Report 25569390 (Version 1)
Quarter: 2025Q3

REPORT INFORMATION
  Report Type: Spontaneous
  Country: None (occurrence: US)
  Receive Date: 20250716
  Receipt Date: 20250716
  Transmission Date: 20251021
  Serious: No
  Sender: TEVA
  Company Number: US-TEVA-VS-3350298

PATIENT
  Age: 84 Year
  Sex: Female

DRUGS (2)
  1. AUSTEDO XR [Suspect]
     Active Substance: DEUTETRABENAZINE
     Indication: Dyskinesia
     Route: 065
     Dates: start: 202505, end: 202505
  2. AUSTEDO XR [Suspect]
     Active Substance: DEUTETRABENAZINE
     Indication: Dyskinesia
     Route: 048
     Dates: start: 20250509

REACTIONS (2)
  - Respiration abnormal [Unknown]
  - Restlessness [Unknown]

NARRATIVE: CASE EVENT DATE: 20250101
